FAERS Safety Report 12190428 (Version 1)
Quarter: 2016Q1

REPORT INFORMATION
  Report Type: Spontaneous
  Country: US (occurrence: US)
  Receive Date: 20160318
  Receipt Date: 20160318
  Transmission Date: 20160526
  Serious: No
  Sender: FDA-Public Use
  Company Number: US-TEVA-639244ACC

PATIENT
  Sex: Female
  Weight: 53.57 kg

DRUGS (3)
  1. FISH OIL [Concomitant]
     Active Substance: FISH OIL
  2. PARAGARD T 380A [Suspect]
     Active Substance: COPPER
     Indication: CONTRACEPTION
     Route: 065
  3. PRENATAL [Concomitant]
     Active Substance: VITAMINS

REACTIONS (1)
  - Patient-device incompatibility [Recovered/Resolved]
